FAERS Safety Report 9047180 (Version 1)
Quarter: 2013Q1

REPORT INFORMATION
  Report Type: Report from Study
  Country: US (occurrence: US)
  Receive Date: 20130130
  Receipt Date: 20130130
  Transmission Date: 20140127
  Serious: No
  Sender: FDA-Public Use
  Company Number: US-ABBOTT-12P-163-0977852-00

PATIENT
  Age: 40 Year
  Sex: Female

DRUGS (12)
  1. HUMIRA [Suspect]
     Indication: CROHN^S DISEASE
     Dates: start: 201207, end: 20120830
  2. NORVASC [Concomitant]
     Indication: HYPERTENSION
  3. KLONOPIN [Concomitant]
     Indication: ANXIETY
  4. ELAVIL [Concomitant]
     Indication: INSOMNIA
     Dosage: AT BEDTIME
  5. FLEXERIL [Concomitant]
     Indication: MYALGIA
  6. NORCO [Concomitant]
     Indication: PAIN
     Dosage: 7.5/325MG
  7. PRILOSEC [Concomitant]
     Indication: GASTROOESOPHAGEAL REFLUX DISEASE
     Dosage: IN THE MORNING
  8. PHENERGAN [Concomitant]
     Indication: NAUSEA
     Dosage: BEFORE MEALS
  9. VITAMIN D3 [Concomitant]
     Indication: PRODUCT USED FOR UNKNOWN INDICATION
  10. IRON [Concomitant]
     Indication: PRODUCT USED FOR UNKNOWN INDICATION
  11. POTASSIUM [Concomitant]
     Indication: PRODUCT USED FOR UNKNOWN INDICATION
  12. MOTRIN [Concomitant]
     Indication: ARTHRALGIA

REACTIONS (5)
  - Urinary retention [Unknown]
  - Sensation of pressure [Unknown]
  - Local swelling [Not Recovered/Not Resolved]
  - Local swelling [Not Recovered/Not Resolved]
  - Rheumatoid arthritis [Not Recovered/Not Resolved]
